FAERS Safety Report 4779739-4 (Version None)
Quarter: 2005Q3

REPORT INFORMATION
  Report Type: 
  Country: None (occurrence: None)
  Receive Date: 20050914
  Receipt Date: 20041110
  Transmission Date: 20060218
  Serious: Yes (Life-Threatening, Hospitalization)
  Sender: FDA-Public Use
  Company Number: 163-20785-04110336

PATIENT
  Age: 63 Year
  Sex: Male
  Weight: 58.514 kg

DRUGS (1)
  1. THALOMID [Suspect]
     Indication: UVEITIS
     Dosage: 100 MG, DAILY, ORAL
     Route: 048
     Dates: start: 20040622, end: 20041001

REACTIONS (4)
  - HEART RATE DECREASED [None]
  - HYPERTENSION [None]
  - MENTAL STATUS CHANGES [None]
  - RESPIRATORY FAILURE [None]
